FAERS Safety Report 22151356 (Version 1)
Quarter: 2023Q1

REPORT INFORMATION
  Report Type: Spontaneous
  Country: US (occurrence: None)
  Receive Date: 20230328
  Receipt Date: 20230328
  Transmission Date: 20230418
  Serious: No
  Sender: FDA-Public Use
  Company Number: None

PATIENT
  Sex: Male
  Weight: 63.5 kg

DRUGS (11)
  1. ABIRATERONE [Suspect]
     Active Substance: ABIRATERONE
     Indication: Prostate cancer
     Dosage: FREQUENCY : DAILY;?
     Route: 048
     Dates: start: 20221214
  2. PREDNISONE [Concomitant]
  3. ONDANSETRON [Concomitant]
  4. FERROUS SULFATE [Concomitant]
  5. OMEPRAZOLE [Concomitant]
  6. RAMELTEON [Concomitant]
  7. SILODOSIN [Concomitant]
  8. MORPHINE [Concomitant]
  9. BICALUTAMIDE [Concomitant]
  10. LUPRON [Concomitant]
  11. XGEVA [Concomitant]

REACTIONS (1)
  - Pneumonia [None]
